FAERS Safety Report 7138964-8 (Version None)
Quarter: 2010Q4

REPORT INFORMATION
  Report Type: 
  Country: None (occurrence: None)
  Receive Date: 20101206
  Receipt Date: 20101124
  Transmission Date: 20110411
  Serious: Yes (Hospitalization)
  Sender: FDA-Public Use
  Company Number: A0882150A

PATIENT
  Age: 68 Year
  Sex: Male

DRUGS (1)
  1. AVANDIA [Suspect]
     Indication: DIABETES MELLITUS
     Route: 048
     Dates: start: 20040923, end: 20090101

REACTIONS (3)
  - CARDIAC FAILURE CONGESTIVE [None]
  - CARDIAC PACEMAKER INSERTION [None]
  - CAROTID ARTERY DISEASE [None]
